FAERS Safety Report 8802414 (Version 3)
Quarter: 2012Q4

REPORT INFORMATION
  Report Type: 
  Country: FR (occurrence: FR)
  Receive Date: 20120921
  Receipt Date: 20121011
  Transmission Date: 20130627
  Serious: Yes (Hospitalization, Other)
  Sender: FDA-Public Use
  Company Number: FR-PFIZER INC-2012152223

PATIENT
  Age: 58 Year
  Sex: Male

DRUGS (8)
  1. RAMIPRIL [Suspect]
     Indication: PRODUCT USED FOR UNKNOWN INDICATION
     Dosage: 10 mg, Daily
     Route: 048
     Dates: end: 20120428
  2. METFORMIN HCL [Suspect]
     Indication: INSULIN-REQUIRING TYPE 2 DIABETES MELLITUS
     Dosage: 1 g, 3x/day
     Route: 048
     Dates: end: 20120428
  3. ESOMEPRAZOLE [Suspect]
     Indication: PRODUCT USED FOR UNKNOWN INDICATION
     Dosage: UNK
     Route: 048
     Dates: start: 201203, end: 20120428
  4. ROSUVASTATIN CALCIUM [Suspect]
     Indication: PRODUCT USED FOR UNKNOWN INDICATION
     Dosage: 20 mg, daily
     Route: 048
     Dates: end: 20120428
  5. BISOPROLOL [Concomitant]
     Dosage: UNK
  6. KARDEGIC [Concomitant]
     Dosage: UNK
  7. LANTUS [Concomitant]
     Indication: INSULIN-REQUIRING TYPE 2 DIABETES MELLITUS
     Dosage: UNK
  8. HUMALOG [Concomitant]
     Indication: INSULIN-REQUIRING TYPE 2 DIABETES MELLITUS
     Dosage: UNK

REACTIONS (2)
  - Hepatitis E [Recovered/Resolved]
  - Renal impairment [Unknown]
